FAERS Safety Report 8103451-7 (Version None)
Quarter: 2012Q1

REPORT INFORMATION
  Report Type: 
  Country: None (occurrence: None)
  Receive Date: 20120201
  Receipt Date: 20120120
  Transmission Date: 20120608
  Serious: Yes (Other)
  Sender: FDA-Public Use
  Company Number: PHHY2012ES007786

PATIENT
  Age: 3 Year
  Sex: Male

DRUGS (1)
  1. KETOTIFEN FUMARATE [Suspect]
     Indication: RESPIRATORY TRACT INFECTION
     Dosage: 7.5 ML, DAILY
     Route: 048
     Dates: start: 20110505, end: 20110515

REACTIONS (2)
  - NERVOUSNESS [None]
  - INSOMNIA [None]
